FAERS Safety Report 20093248 (Version 1)
Quarter: 2021Q4

REPORT INFORMATION
  Report Type: Spontaneous
  Country: AZ (occurrence: AZ)
  Receive Date: 20211120
  Receipt Date: 20211120
  Transmission Date: 20220304
  Serious: Yes (Death)
  Sender: FDA-Public Use
  Company Number: AZ-NOVARTISPH-NVSC2021AZ265633

PATIENT
  Sex: Female

DRUGS (1)
  1. GLIVEC [Suspect]
     Active Substance: IMATINIB MESYLATE
     Indication: Philadelphia positive acute lymphocytic leukaemia
     Dosage: 600 MG (6 X 100 MG TABLETS)
     Route: 065

REACTIONS (3)
  - Cardiovascular disorder [Fatal]
  - Acute lymphocytic leukaemia recurrent [Fatal]
  - Drug resistance [Fatal]
